FAERS Safety Report 25856009 (Version 1)
Quarter: 2025Q3

REPORT INFORMATION
  Report Type: Report from Study
  Country: CN (occurrence: CN)
  Receive Date: 20250928
  Receipt Date: 20250928
  Transmission Date: 20251020
  Serious: Yes (Death, Hospitalization, Other)
  Sender: SANOFI AVENTIS
  Company Number: CN-SA-2025SA257858

PATIENT
  Age: 28 Year
  Sex: Female

DRUGS (2)
  1. BELUMOSUDIL MESYLATE [Suspect]
     Active Substance: BELUMOSUDIL MESYLATE
     Indication: Chronic graft versus host disease
     Dosage: 200 MG, QD
     Route: 048
     Dates: start: 20250520
  2. BELUMOSUDIL MESYLATE [Suspect]
     Active Substance: BELUMOSUDIL MESYLATE
     Indication: Chronic graft versus host disease in lung

REACTIONS (5)
  - Pneumonia [Fatal]
  - Productive cough [Fatal]
  - Pyrexia [Fatal]
  - Sputum discoloured [Fatal]
  - Viral infection [Fatal]

NARRATIVE: CASE EVENT DATE: 20250101
